FAERS Safety Report 10218785 (Version 4)
Quarter: 2015Q1

REPORT INFORMATION
  Report Type: Spontaneous
  Country: US (occurrence: US)
  Receive Date: 20140605
  Receipt Date: 20150109
  Transmission Date: 20150720
  Serious: Yes (Death, Life-Threatening, Hospitalization, Other)
  Sender: FDA-Public Use
  Company Number: US-009507513-1406USA002165

PATIENT
  Sex: Male
  Weight: 66.67 kg

DRUGS (1)
  1. JANUVIA [Suspect]
     Active Substance: SITAGLIPTIN PHOSPHATE
     Indication: TYPE 2 DIABETES MELLITUS
     Dosage: 100 MG, QD
     Route: 048
     Dates: start: 20090211, end: 20111001

REACTIONS (33)
  - Metastases to liver [Unknown]
  - Constipation [Unknown]
  - Lobar pneumonia [Unknown]
  - Granulomatous liver disease [Unknown]
  - Osteoarthritis [Unknown]
  - Dyslipidaemia [Unknown]
  - Back pain [Not Recovered/Not Resolved]
  - Renal cyst [Unknown]
  - Biopsy liver [Unknown]
  - Biopsy pancreas [Unknown]
  - Urinary incontinence [Unknown]
  - Chronic obstructive pulmonary disease [Not Recovered/Not Resolved]
  - Fibromyalgia [Unknown]
  - Nausea [Unknown]
  - Cerebrovascular accident [Unknown]
  - Dementia [Unknown]
  - Diverticulum [Unknown]
  - Gastroenteritis [Unknown]
  - Pulmonary fibrosis [Unknown]
  - Gastrooesophageal reflux disease [Unknown]
  - Chronic gastritis [Not Recovered/Not Resolved]
  - Benign prostatic hyperplasia [Unknown]
  - Suicide attempt [Unknown]
  - Cholecystectomy [Unknown]
  - Hiatus hernia [Unknown]
  - Anxiety [Unknown]
  - Colitis [Unknown]
  - Hypertension [Unknown]
  - Subdural haematoma [Unknown]
  - Neuropathy peripheral [Unknown]
  - Pancreatic carcinoma metastatic [Fatal]
  - Hernia repair [Unknown]
  - Anaemia [Unknown]

NARRATIVE: CASE EVENT DATE: 20100505
